FAERS Safety Report 24837008 (Version 1)
Quarter: 2025Q1

REPORT INFORMATION
  Report Type: Spontaneous
  Country: CN (occurrence: CN)
  Receive Date: 20250113
  Receipt Date: 20250113
  Transmission Date: 20250409
  Serious: Yes (Hospitalization)
  Sender: FRESENIUS KABI
  Company Number: CN-FreseniusKabi-FK202500044

PATIENT
  Age: 81 Year
  Sex: Male
  Weight: 54 kg

DRUGS (2)
  1. INTRALIPID [Suspect]
     Active Substance: EGG PHOSPHOLIPIDS\GLYCERIN\SOYBEAN OIL
     Indication: Nutritional supplementation
     Dosage: FORM OF ADMINISTRATION: INJECTION
     Route: 041
     Dates: start: 20241230, end: 20241230
  2. AMINO ACIDS, SOURCE UNSPECIFIED [Concomitant]
     Active Substance: AMINO ACIDS, SOURCE UNSPECIFIED
     Indication: Nutritional supplementation

REACTIONS (3)
  - Pyrexia [Recovered/Resolved]
  - Chills [Recovered/Resolved]
  - Temperature intolerance [Recovered/Resolved]

NARRATIVE: CASE EVENT DATE: 20241230
